FAERS Safety Report 5932843-7 (Version None)
Quarter: 2008Q4

REPORT INFORMATION
  Report Type: 
  Country: None (occurrence: None)
  Receive Date: 20081028
  Receipt Date: 20081017
  Transmission Date: 20090506
  Serious: Yes (Other)
  Sender: FDA-Public Use
  Company Number: IE-AMGEN-UK314499

PATIENT
  Sex: Female

DRUGS (1)
  1. NEULASTA [Suspect]
     Indication: CHEMOTHERAPY
     Dates: start: 20081017

REACTIONS (4)
  - CHEST PAIN [None]
  - OXYGEN SATURATION DECREASED [None]
  - PALPITATIONS [None]
  - PANIC ATTACK [None]
